FAERS Safety Report 18524547 (Version 5)
Quarter: 2021Q4

REPORT INFORMATION
  Report Type: Other
  Country: CA (occurrence: CA)
  Receive Date: 20201120
  Receipt Date: 20211108
  Transmission Date: 20220303
  Serious: Yes (Hospitalization, Other)
  Sender: FDA-Public Use
  Company Number: CA-CELLTRION INC.-2020CA031592

PATIENT

DRUGS (28)
  1. RITUXIMAB [Suspect]
     Active Substance: RITUXIMAB
     Indication: Rheumatoid arthritis
     Dosage: 500 MILLIGRAM, 1 EVERY 15 DAYS
     Route: 042
  2. RITUXIMAB [Suspect]
     Active Substance: RITUXIMAB
     Dosage: 1000 MILLIGRAM,  1 EVERY 15 DAYS
     Route: 042
  3. RITUXIMAB [Suspect]
     Active Substance: RITUXIMAB
     Dosage: 750 MILLIGRAM,  1 EVERY 15 DAYS
     Route: 042
  4. ACETAMINOPHEN [Concomitant]
     Active Substance: ACETAMINOPHEN
     Indication: Premedication
     Dosage: 650 MILLIGRAM, TOTAL
     Route: 048
  5. ACETAMINOPHEN [Concomitant]
     Active Substance: ACETAMINOPHEN
     Dosage: 650 MILLIGRAM
     Route: 048
  6. CALCIUM [Concomitant]
     Active Substance: CALCIUM
  7. LITHIUM CARBONATE [Concomitant]
     Active Substance: LITHIUM CARBONATE
     Dosage: 900.0 MILLIGRAM, 1 EVERY 1 DAY
     Route: 065
  8. DIPHENHYDRAMINE HYDROCHLORIDE [Concomitant]
     Active Substance: DIPHENHYDRAMINE HYDROCHLORIDE
     Indication: Premedication
     Dosage: 50 MILLIGRAM
     Route: 048
  9. DIPHENHYDRAMINE HYDROCHLORIDE [Concomitant]
     Active Substance: DIPHENHYDRAMINE HYDROCHLORIDE
     Dosage: 50 MILLIGRAM
     Route: 048
  10. DIPHENHYDRAMINE HYDROCHLORIDE [Concomitant]
     Active Substance: DIPHENHYDRAMINE HYDROCHLORIDE
     Dosage: 50 MILLIGRAM, TOTAL
     Route: 048
  11. ENBREL [Concomitant]
     Active Substance: ETANERCEPT
  12. FOLIC ACID [Concomitant]
     Active Substance: FOLIC ACID
     Dosage: 5.0 MILLIGRAM
     Route: 065
  13. HYDROXYCHLOROQUINE [Concomitant]
     Active Substance: HYDROXYCHLOROQUINE
     Indication: Headache
  14. HYDROXYCHLOROQUINE SULFATE [Concomitant]
     Active Substance: HYDROXYCHLOROQUINE SULFATE
     Indication: Rheumatoid arthritis
     Dosage: 400 MG, DAILY
     Route: 065
  15. LITHIUM [Concomitant]
     Active Substance: LITHIUM
  16. METHOTREXATE [Concomitant]
     Active Substance: METHOTREXATE
     Dosage: 15.0 MILLIGRAM, 1 EVERY 1 DAYS
     Route: 065
  17. METHYLPREDNISOLONE [Concomitant]
     Active Substance: METHYLPREDNISOLONE
     Indication: Premedication
     Dosage: 100 MILLIGRAM
     Route: 042
  18. METHYLPREDNISOLONE [Concomitant]
     Active Substance: METHYLPREDNISOLONE
     Dosage: 100 MILLIGRAM
     Route: 042
  19. METHYLPREDNISOLONE [Concomitant]
     Active Substance: METHYLPREDNISOLONE
     Dosage: 100 MILLIGRAM, TOTAL
     Route: 042
  20. AZITHROMYCIN ANHYDROUS [Concomitant]
     Active Substance: AZITHROMYCIN ANHYDROUS
  21. PREDNISONE [Concomitant]
     Active Substance: PREDNISONE
  22. PREMARIN [Concomitant]
     Active Substance: ESTROGENS, CONJUGATED
  23. REMICADE [Concomitant]
     Active Substance: INFLIXIMAB
  24. ACETAMINOPHEN\TRAMADOL [Concomitant]
     Active Substance: ACETAMINOPHEN\TRAMADOL
     Dosage: UNK, 2 EVERY 1 DAYS
     Route: 065
  25. TRAMADOL [Concomitant]
     Active Substance: TRAMADOL
     Route: 065
  26. TYLENOL [Concomitant]
     Active Substance: ACETAMINOPHEN
  27. TYLENOL EXTRA STRENGTH [Concomitant]
     Active Substance: ACETAMINOPHEN
  28. CHOLECALCIFEROL [Concomitant]
     Active Substance: CHOLECALCIFEROL
     Dosage: 2000.0 IU (INTERNATIONAL UNIT)
     Route: 065

REACTIONS (37)
  - Blood pressure systolic increased [Not Recovered/Not Resolved]
  - Cervical dysplasia [Not Recovered/Not Resolved]
  - Dysphonia [Not Recovered/Not Resolved]
  - Eye discharge [Not Recovered/Not Resolved]
  - Female reproductive tract disorder [Not Recovered/Not Resolved]
  - Heart rate decreased [Not Recovered/Not Resolved]
  - Hip arthroplasty [Not Recovered/Not Resolved]
  - Joint effusion [Not Recovered/Not Resolved]
  - Oxygen saturation decreased [Not Recovered/Not Resolved]
  - Pain in extremity [Not Recovered/Not Resolved]
  - Peripheral swelling [Not Recovered/Not Resolved]
  - Post procedural swelling [Not Recovered/Not Resolved]
  - Rheumatoid arthritis [Not Recovered/Not Resolved]
  - Rotator cuff syndrome [Not Recovered/Not Resolved]
  - Spinal stenosis [Not Recovered/Not Resolved]
  - Toothache [Not Recovered/Not Resolved]
  - Vertebral foraminal stenosis [Not Recovered/Not Resolved]
  - Nerve block [Not Recovered/Not Resolved]
  - Abscess oral [Not Recovered/Not Resolved]
  - Arthralgia [Not Recovered/Not Resolved]
  - Blister [Not Recovered/Not Resolved]
  - Blood immunoglobulin G decreased [Not Recovered/Not Resolved]
  - Blood immunoglobulin M decreased [Not Recovered/Not Resolved]
  - Blood pressure fluctuation [Not Recovered/Not Resolved]
  - Blood pressure increased [Not Recovered/Not Resolved]
  - Drug hypersensitivity [Not Recovered/Not Resolved]
  - Infection [Not Recovered/Not Resolved]
  - Influenza [Not Recovered/Not Resolved]
  - Infusion related reaction [Not Recovered/Not Resolved]
  - Osteoarthritis [Not Recovered/Not Resolved]
  - Pyrexia [Not Recovered/Not Resolved]
  - Rash [Not Recovered/Not Resolved]
  - Sinusitis [Not Recovered/Not Resolved]
  - Tooth abscess [Not Recovered/Not Resolved]
  - Off label use [Not Recovered/Not Resolved]
  - Off label use [Unknown]
  - Underdose [Unknown]
